FAERS Safety Report 5076007-0 (Version None)
Quarter: 2006Q3

REPORT INFORMATION
  Report Type: 
  Country: None (occurrence: None)
  Receive Date: 20060808
  Receipt Date: 20060808
  Transmission Date: 20061208
  Serious: Yes (Life-Threatening)
  Sender: FDA-Public Use
  Company Number: None

PATIENT
  Age: 59 Year
  Sex: Male
  Weight: 83.6 kg

DRUGS (1)
  1. ATENOLOL [Suspect]
     Indication: HYPERTENSION
     Dosage: 25MG QD PO
     Route: 048

REACTIONS (8)
  - ANAEMIA [None]
  - ATRIOVENTRICULAR BLOCK [None]
  - BRADYARRHYTHMIA [None]
  - HEART RATE DECREASED [None]
  - HEPATITIS C POSITIVE [None]
  - REFUSAL OF TREATMENT BY PATIENT [None]
  - SERUM FERRITIN DECREASED [None]
  - TREATMENT NONCOMPLIANCE [None]
